FAERS Safety Report 5916933-0 (Version None)
Quarter: 2008Q4

REPORT INFORMATION
  Report Type: 
  Country: None (occurrence: None)
  Receive Date: 20081013
  Receipt Date: 20081002
  Transmission Date: 20090506
  Serious: Yes (Other)
  Sender: FDA-Public Use
  Company Number: GB-B.I. PHARMACEUTICALS,INC./RIDGEFIELD-2008-UK-01624UK

PATIENT
  Age: 38 Year
  Sex: Male

DRUGS (1)
  1. PRAMIPEXOLE DIHYDROCHLORIDE [Suspect]
     Indication: PARKINSON'S DISEASE
     Dosage: 3MG
     Dates: start: 20061101, end: 20080901

REACTIONS (2)
  - DOPAMINE DYSREGULATION SYNDROME [None]
  - PATHOLOGICAL GAMBLING [None]
